FAERS Safety Report 8900562 (Version 3)
Quarter: 2013Q2

REPORT INFORMATION
  Report Type: Report from Study
  Country: GB (occurrence: GB)
  Receive Date: 20121109
  Receipt Date: 20130404
  Transmission Date: 20140414
  Serious: Yes (Hospitalization, Other)
  Sender: FDA-Public Use
  Company Number: GB-MPIJNJ-2012-06460

PATIENT
  Sex: 0

DRUGS (6)
  1. VELCADE [Suspect]
     Indication: DIFFUSE LARGE B-CELL LYMPHOMA
     Dosage: 2.7 MG, UNK
     Route: 065
     Dates: start: 20120629, end: 20120921
  2. DOXORUBICIN [Suspect]
     Indication: DIFFUSE LARGE B-CELL LYMPHOMA
     Dosage: 104 MG, UNK
     Route: 065
     Dates: start: 20120629, end: 20120921
  3. RITUXIMAB [Suspect]
     Indication: DIFFUSE LARGE B-CELL LYMPHOMA
     Dosage: 780 MG, UNK
     Route: 065
     Dates: start: 20120629, end: 20120921
  4. CYCLOPHOSPHAMIDE [Suspect]
     Indication: DIFFUSE LARGE B-CELL LYMPHOMA
     Dosage: 1560 MG, UNK
     Route: 065
     Dates: start: 20120629, end: 20120921
  5. PREDNISOLONE [Suspect]
     Indication: DIFFUSE LARGE B-CELL LYMPHOMA
     Dosage: 100 MG, UNK
     Route: 065
     Dates: start: 20120629, end: 20120921
  6. VINCRISTINE [Suspect]
     Indication: DIFFUSE LARGE B-CELL LYMPHOMA
     Dosage: 2 MG, UNK
     Route: 065
     Dates: start: 20120629, end: 20120921

REACTIONS (3)
  - Dyspnoea [Recovered/Resolved]
  - Intestinal perforation [Recovered/Resolved]
  - Influenza like illness [Recovered/Resolved]
